FAERS Safety Report 9719332 (Version 2)
Quarter: 2013Q4

REPORT INFORMATION
  Report Type: Report from Study
  Country: CA (occurrence: CA)
  Receive Date: 20131127
  Receipt Date: 20131130
  Transmission Date: 20140711
  Serious: Yes (Death, Other)
  Sender: FDA-Public Use
  Company Number: PHHY2013CA136790

PATIENT
  Sex: Female

DRUGS (9)
  1. CLOZARIL [Suspect]
     Indication: SCHIZOAFFECTIVE DISORDER
     Dosage: 200 MG
     Route: 048
     Dates: start: 19990115
  2. ZOPICLONE [Concomitant]
     Dosage: 15 MG, QHS
  3. EFFEXOR [Concomitant]
     Dosage: 150 MG, UNK
  4. DEXEDRINE [Concomitant]
     Dosage: 10 MG, UNK
  5. SEROQUEL [Concomitant]
     Dosage: 400 MG, QHS
  6. SYNTHROID [Concomitant]
     Dosage: 0.025 MG, UNK
  7. ATIVAN [Concomitant]
     Dosage: 1 MG, PRN
  8. MELATONIN [Concomitant]
     Dosage: 3 MG, UNK
  9. TRAZODONE [Concomitant]
     Dosage: 150 MG, QHS

REACTIONS (4)
  - Death [Fatal]
  - Loss of consciousness [Unknown]
  - Circulatory collapse [Unknown]
  - Tachycardia [Unknown]
